FAERS Safety Report 8256109-8 (Version None)
Quarter: 2012Q2

REPORT INFORMATION
  Report Type: 
  Country: None (occurrence: None)
  Receive Date: 20120403
  Receipt Date: 20120321
  Transmission Date: 20120825
  Serious: Yes (Other)
  Sender: FDA-Public Use
  Company Number: US-ROCHE-1055197

PATIENT
  Sex: Female

DRUGS (3)
  1. ASPIRIN [Concomitant]
  2. PLAVIX [Concomitant]
  3. LUCENTIS [Suspect]
     Indication: PRODUCT USED FOR UNKNOWN INDICATION
     Route: 050
     Dates: start: 20110701

REACTIONS (2)
  - EYE PAIN [None]
  - FALL [None]
